FAERS Safety Report 7672781-5 (Version None)
Quarter: 2011Q3

REPORT INFORMATION
  Report Type: 
  Country: None (occurrence: None)
  Receive Date: 20110804
  Receipt Date: 20110720
  Transmission Date: 20111222
  Serious: Yes (Hospitalization, Other)
  Sender: FDA-Public Use
  Company Number: 2011MA008444

PATIENT
  Age: 39 Year
  Sex: Female

DRUGS (1)
  1. IBUPROFEN [Suspect]
     Indication: ARTHRALGIA

REACTIONS (8)
  - MENINGITIS ASEPTIC [None]
  - INFLAMMATION [None]
  - HEPATOCELLULAR INJURY [None]
  - SYSTEMIC LUPUS ERYTHEMATOSUS [None]
  - PLEUROPERICARDITIS [None]
  - PLEURAL EFFUSION [None]
  - ELECTROENCEPHALOGRAM ABNORMAL [None]
  - HAEMOLYTIC ANAEMIA [None]
